FAERS Safety Report 5917577-7 (Version None)
Quarter: 2008Q4

REPORT INFORMATION
  Report Type: 
  Country: None (occurrence: None)
  Receive Date: 20081010
  Receipt Date: 20081010
  Transmission Date: 20090506
  Serious: Yes (Hospitalization)
  Sender: FDA-Public Use
  Company Number: None

PATIENT
  Age: 78 Year

DRUGS (4)
  1. WARFARIN SODIUM [Suspect]
     Indication: AORTIC VALVE REPLACEMENT
     Dosage: 5.4 MG EVERY DAY PO
     Route: 048
     Dates: end: 20081002
  2. WARFARIN SODIUM [Suspect]
     Indication: HEART VALVE REPLACEMENT
     Dosage: 5.4 MG EVERY DAY PO
     Route: 048
     Dates: end: 20081002
  3. WARFARIN SODIUM [Suspect]
     Indication: MITRAL VALVE REPLACEMENT
     Dosage: 5.4 MG EVERY DAY PO
     Route: 048
     Dates: end: 20081002
  4. WARFARIN SODIUM [Suspect]
     Indication: TRICUSPID VALVE REPLACEMENT
     Dosage: 5.4 MG EVERY DAY PO
     Route: 048
     Dates: end: 20081002

REACTIONS (4)
  - GASTRIC HAEMORRHAGE [None]
  - HAEMORRHAGE [None]
  - INTERNATIONAL NORMALISED RATIO ABNORMAL [None]
  - INTERNATIONAL NORMALISED RATIO INCREASED [None]
